FAERS Safety Report 8086713-1 (Version None)
Quarter: 2012Q1

REPORT INFORMATION
  Report Type: 
  Country: None (occurrence: None)
  Receive Date: 20120128
  Receipt Date: 20110610
  Transmission Date: 20120608
  Serious: No
  Sender: FDA-Public Use
  Company Number: US-ABBOTT-11P-163-0731869-00

PATIENT
  Sex: Female
  Weight: 89.438 kg

DRUGS (11)
  1. SIMBICORT TURBUHALER [Concomitant]
     Indication: ASTHMA
  2. PROAIR HFA [Concomitant]
     Indication: ASTHMA
  3. NIFEDICAL [Concomitant]
     Indication: HYPERTENSION
  4. LORATADINE [Concomitant]
     Indication: HYPERSENSITIVITY
  5. OMEPRAZOLE [Concomitant]
     Indication: GASTROOESOPHAGEAL REFLUX DISEASE
  6. METHOTREXATE [Concomitant]
     Indication: PSORIASIS
  7. CALCIUM WITH VITAMIN D [Concomitant]
     Indication: SUPPLEMENTATION THERAPY
  8. UNNAMED STOOL SOFTENER [Concomitant]
     Indication: CONSTIPATION
  9. FOLIC ACID [Concomitant]
     Indication: SUPPLEMENTATION THERAPY
  10. HYDROCHLOROTHIAZIDE [Concomitant]
     Indication: HYPERTENSION
  11. HUMIRA [Suspect]
     Indication: PSORIASIS
     Dates: start: 20110527

REACTIONS (5)
  - RHINORRHOEA [None]
  - COUGH [None]
  - ASTHENIA [None]
  - HYPERSENSITIVITY [None]
  - THROAT IRRITATION [None]
